FAERS Safety Report 7010986-7 (Version None)
Quarter: 2010Q3

REPORT INFORMATION
  Report Type: 
  Country: None (occurrence: None)
  Receive Date: 20100923
  Receipt Date: 20081016
  Transmission Date: 20110219
  Serious: Yes (Hospitalization)
  Sender: FDA-Public Use
  Company Number: US-WYE-H06093208

PATIENT
  Sex: Female

DRUGS (4)
  1. ZOSYN [Suspect]
     Indication: SKIN INFECTION
     Dosage: 50 MG
     Route: 042
  2. ZOSYN [Suspect]
     Indication: DECUBITUS ULCER
  3. ZOSYN [Suspect]
     Indication: OSTEOMYELITIS
  4. VANCOMYCIN [Concomitant]
     Indication: OSTEOMYELITIS
     Dosage: UNKNOWN
     Route: 042

REACTIONS (2)
  - EOSINOPHILIA [None]
  - STEVENS-JOHNSON SYNDROME [None]
